FAERS Safety Report 9953213 (Version 1)
Quarter: 2014Q1

REPORT INFORMATION
  Report Type: Report from Study
  Country: US (occurrence: US)
  Receive Date: 20140304
  Receipt Date: 20140304
  Transmission Date: 20141002
  Serious: No
  Sender: FDA-Public Use
  Company Number: US-ABBVIE-13P-163-1071294-00

PATIENT
  Age: 52 Year
  Sex: Male

DRUGS (10)
  1. HUMIRA [Suspect]
     Indication: RHEUMATOID ARTHRITIS
  2. VITAMIN D [Concomitant]
     Indication: PRODUCT USED FOR UNKNOWN INDICATION
     Route: 048
  3. LOSARTAN [Concomitant]
     Indication: ATRIOVENTRICULAR BLOCK
     Dosage: 25 MG DAILY
  4. FLEXERIL [Concomitant]
     Indication: MUSCLE RELAXANT THERAPY
     Route: 048
  5. PROZAC [Concomitant]
     Indication: ANXIETY
     Dosage: 20 MG DAILY
     Route: 048
  6. VALIUM [Concomitant]
     Indication: MUSCLE SPASMS
     Route: 048
  7. PERCOCET [Concomitant]
     Indication: PAIN
     Dosage: 5/325 MG 3 TIMES DAILY OR AS NEEDED
     Route: 048
  8. PREVACID [Concomitant]
     Indication: GASTRIC DISORDER
     Dosage: 30 MG DAILY
     Route: 048
  9. BENADRYL [Concomitant]
     Indication: INSOMNIA
  10. BENADRYL [Concomitant]
     Indication: SEASONAL ALLERGY

REACTIONS (1)
  - Pruritus [Not Recovered/Not Resolved]
